FAERS Safety Report 10055885 (Version 2)
Quarter: 2014Q2

REPORT INFORMATION
  Report Type: Report from Study
  Country: US (occurrence: US)
  Receive Date: 20140403
  Receipt Date: 20140403
  Transmission Date: 20141212
  Serious: Yes (Hospitalization, Other)
  Sender: FDA-Public Use
  Company Number: US-JNJFOC-20130208690

PATIENT
  Age: 69 Year
  Sex: Female
  Weight: 96.62 kg

DRUGS (15)
  1. REMICADE [Suspect]
     Indication: PSORIATIC ARTHROPATHY
     Route: 042
     Dates: end: 2010
  2. REMICADE [Suspect]
     Indication: PSORIATIC ARTHROPATHY
     Route: 042
     Dates: end: 2014
  3. REMICADE [Suspect]
     Indication: PSORIATIC ARTHROPATHY
     Route: 042
     Dates: start: 2010, end: 201211
  4. PAIN MEDICATION [Suspect]
     Indication: PAIN
     Route: 065
  5. ASPIRIN [Concomitant]
     Route: 048
  6. METHOTREXATE [Concomitant]
     Route: 065
  7. LYRICA [Concomitant]
     Indication: NEURALGIA
     Route: 065
  8. MELOXICAM [Concomitant]
     Indication: ARTHRITIS
     Route: 065
  9. CYMBALTA [Concomitant]
     Indication: DEPRESSION
     Route: 065
  10. LOSARTAN [Concomitant]
     Indication: BLOOD PRESSURE
     Route: 048
  11. PRAVASTATIN [Concomitant]
     Indication: BLOOD CHOLESTEROL
     Route: 048
  12. ALLEGRA [Concomitant]
     Indication: MULTIPLE ALLERGIES
     Route: 065
  13. METHOTREXATE [Concomitant]
     Indication: ARTHRITIS
     Route: 048
  14. FOLIC ACID [Concomitant]
     Route: 048
  15. VITAMIN D [Concomitant]
     Route: 048

REACTIONS (4)
  - Drug effect decreased [Unknown]
  - Knee arthroplasty [Unknown]
  - Cyst [Recovered/Resolved]
  - Body height decreased [Not Recovered/Not Resolved]
